FAERS Safety Report 7177734-1 (Version None)
Quarter: 2010Q4

REPORT INFORMATION
  Report Type: 
  Country: None (occurrence: None)
  Receive Date: 20101220
  Receipt Date: 20101215
  Transmission Date: 20110411
  Serious: Yes (Other)
  Sender: FDA-Public Use
  Company Number: GB-MERCK-1012GBR00063

PATIENT
  Age: 80 Year
  Sex: Female
  Weight: 46 kg

DRUGS (12)
  1. FOSAMAX [Suspect]
     Indication: OSTEOPOROSIS
     Route: 048
     Dates: start: 20040308, end: 20101108
  2. CALCIUM CARBONATE AND CHOLECALCIFEROL [Concomitant]
     Indication: OSTEOPENIA
     Route: 065
     Dates: start: 20091116
  3. AMITRIPTYLINE HYDROCHLORIDE [Concomitant]
     Indication: BACK PAIN
     Route: 048
     Dates: start: 20060321
  4. ATORVASTATIN [Concomitant]
     Indication: HYPERLIPIDAEMIA
     Route: 048
     Dates: start: 20050112
  5. BENDROFLUMETHIAZIDE [Concomitant]
     Indication: HYPERTENSION
     Route: 048
     Dates: start: 20050124
  6. BISOPROLOL [Concomitant]
     Indication: HYPERTENSION
     Route: 065
     Dates: start: 20090601
  7. BISOPROLOL [Concomitant]
     Indication: LEFT VENTRICULAR FAILURE
     Route: 065
     Dates: start: 20090601
  8. BUPRENORPHINE [Concomitant]
     Indication: BACK PAIN
     Route: 065
     Dates: start: 20090505
  9. NITROGLYCERIN [Concomitant]
     Indication: ANGINA PECTORIS
     Route: 060
     Dates: start: 20010305
  10. LANSOPRAZOLE [Concomitant]
     Indication: HIATUS HERNIA
     Route: 048
     Dates: start: 20101026
  11. RAMIPRIL [Concomitant]
     Indication: HYPERTENSION
     Route: 048
     Dates: start: 20070221
  12. TIOCONAZOLE [Concomitant]
     Indication: TINEA INFECTION
     Route: 061
     Dates: start: 20080213

REACTIONS (2)
  - OSTEONECROSIS OF JAW [None]
  - SWELLING [None]
